FAERS Safety Report 7313868-6 (Version None)
Quarter: 2011Q1

REPORT INFORMATION
  Report Type: 
  Country: None (occurrence: None)
  Receive Date: 20110217
  Receipt Date: 20110217
  Transmission Date: 20110831
  Serious: Yes (Other)
  Sender: FDA-Public Use
  Company Number: None

PATIENT
  Age: 41 Year
  Sex: Female
  Weight: 62.1428 kg

DRUGS (2)
  1. DYSPORT [Suspect]
     Indication: SKIN WRINKLING
     Dosage: 78 UNITS ONCE; 12 UNITS ONCE
     Dates: start: 20110208, end: 20110216
  2. DYSPORT [Suspect]
     Indication: SKIN WRINKLING
     Dosage: 78 UNITS ONCE; 12 UNITS ONCE
     Dates: start: 20110215, end: 20110216

REACTIONS (3)
  - DEPRESSION [None]
  - FLAT AFFECT [None]
  - INSOMNIA [None]
